FAERS Safety Report 9028566 (Version 1)
Quarter: 2013Q1

REPORT INFORMATION
  Report Type: Spontaneous
  Country: US (occurrence: US)
  Receive Date: 20130124
  Receipt Date: 20130124
  Transmission Date: 20140127
  Serious: Yes (Death)
  Sender: FDA-Public Use
  Company Number: US-GLAXOSMITHKLINE-A1009223A

PATIENT
  Age: 74 Year
  Sex: Male

DRUGS (1)
  1. PROMACTA [Suspect]
     Indication: PRODUCT USED FOR UNKNOWN INDICATION
     Dosage: 12.5MG PER DAY
     Route: 065

REACTIONS (1)
  - Death [Fatal]
